FAERS Safety Report 4677475-6 (Version None)
Quarter: 2005Q2

REPORT INFORMATION
  Report Type: 
  Country: None (occurrence: None)
  Receive Date: 20050526
  Receipt Date: 20050526
  Transmission Date: 20051028
  Serious: No
  Sender: FDA-Public Use
  Company Number: None

PATIENT
  Age: 61 Year
  Sex: Male
  Weight: 51.2565 kg

DRUGS (7)
  1. ESKALITH [Suspect]
     Dosage: 300 MG PO BID
     Route: 048
  2. BACLOFEN [Concomitant]
  3. BUPROPION [Concomitant]
  4. CLONAZEPAM [Concomitant]
  5. METOPROLOL [Concomitant]
  6. NITROGLYCERIN [Concomitant]
  7. OLANZAPINE [Concomitant]

REACTIONS (2)
  - FALL [None]
  - THERAPEUTIC AGENT TOXICITY [None]
